FAERS Safety Report 9188790 (Version 1)
Quarter: 2013Q1

REPORT INFORMATION
  Report Type: Spontaneous
  Country: US (occurrence: US)
  Receive Date: 20130326
  Receipt Date: 20130326
  Transmission Date: 20140127
  Serious: Yes (Hospitalization)
  Sender: FDA-Public Use
  Company Number: PHHY2013US027599

PATIENT
  Age: 65 Year
  Sex: Male

DRUGS (8)
  1. ACETYLSALICYLIC ACID [Suspect]
     Indication: CARDIOVASCULAR DISORDER
     Dosage: 81 MG, PER DAY
  2. NAPROXEN [Suspect]
  3. ROSUVASTATIN [Concomitant]
     Dosage: 20 MG, DAILY
  4. VALSARTAN [Concomitant]
     Dosage: 80 MG, DAILY
  5. EZETIMIBE [Concomitant]
     Dosage: 10 MG, DAILY
  6. FISH OIL [Concomitant]
     Dosage: 1 G, DAILY
  7. MULTIVITAMINS [Concomitant]
     Dosage: 1 DF, DAILY
  8. COENZYME Q10 + VITAMIN E [Concomitant]

REACTIONS (2)
  - Upper gastrointestinal haemorrhage [Recovered/Resolved]
  - Faeces discoloured [Recovered/Resolved]
